FAERS Safety Report 5023151-X (Version None)
Quarter: 2006Q2

REPORT INFORMATION
  Report Type: 
  Country: None (occurrence: None)
  Receive Date: 20060605
  Receipt Date: 20060518
  Transmission Date: 20061013
  Serious: Yes (Hospitalization)
  Sender: FDA-Public Use
  Company Number: DSA_28232_2006

PATIENT
  Age: 64 Year
  Sex: Male

DRUGS (7)
  1. DILZEM-RR [Suspect]
     Indication: ATRIAL FLUTTER
     Dosage: 180 MG Q DAY PO
     Route: 048
     Dates: start: 20060324, end: 20060330
  2. CONCOR [Suspect]
     Indication: ATRIAL FIBRILLATION
     Dosage: 10 MG Q DAY PO
     Route: 048
     Dates: start: 20060324, end: 20060330
  3. SINTROM [Concomitant]
  4. COZAAR [Concomitant]
  5. TOREM /01036501/ [Concomitant]
  6. ELTROXIN [Concomitant]
  7. SIMVASTATIN [Concomitant]

REACTIONS (3)
  - PRURITUS [None]
  - RASH MACULO-PAPULAR [None]
  - TOXIC SKIN ERUPTION [None]
